FAERS Safety Report 18421943 (Version 1)
Quarter: 2020Q4

REPORT INFORMATION
  Report Type: Spontaneous
  Country: US (occurrence: US)
  Receive Date: 20201023
  Receipt Date: 20201023
  Transmission Date: 20210114
  Serious: Yes (Other)
  Sender: FDA-Public Use
  Company Number: US-PFIZER INC-2020408963

PATIENT
  Sex: Female

DRUGS (3)
  1. IBRANCE [Suspect]
     Active Substance: PALBOCICLIB
     Dosage: 75 MG, CYCLIC
     Dates: end: 20201015
  2. IBRANCE [Suspect]
     Active Substance: PALBOCICLIB
     Dosage: 100 MG, CYCLIC (FOR THREE WEEKS)
  3. ANASTROZOLE. [Concomitant]
     Active Substance: ANASTROZOLE
     Dosage: UNK

REACTIONS (5)
  - Arthralgia [Recovering/Resolving]
  - Back pain [Recovering/Resolving]
  - White blood cell count decreased [Recovering/Resolving]
  - Feeling abnormal [Recovering/Resolving]
  - Pain in extremity [Recovering/Resolving]
